FAERS Safety Report 8927242 (Version 2)
Quarter: 2012Q4

REPORT INFORMATION
  Report Type: 
  Country: US (occurrence: US)
  Receive Date: 20121127
  Receipt Date: 20121206
  Transmission Date: 20130627
  Serious: Yes (Other)
  Sender: FDA-Public Use
  Company Number: US-TEVA-372175USA

PATIENT
  Sex: Female

DRUGS (1)
  1. TRAMADOL [Suspect]

REACTIONS (2)
  - Loss of consciousness [Unknown]
  - Drug dependence [Unknown]
